FAERS Safety Report 25061893 (Version 2)
Quarter: 2025Q2

REPORT INFORMATION
  Report Type: Report from Study
  Country: US (occurrence: US)
  Receive Date: 20250311
  Receipt Date: 20250422
  Transmission Date: 20250717
  Serious: No
  Sender: SUNOVION
  Company Number: US-SUMITOMO PHARMA SWITZERLAND GMBH-2025SPA001729

PATIENT

DRUGS (9)
  1. ORGOVYX [Suspect]
     Active Substance: RELUGOLIX
     Indication: Prostate cancer
     Dosage: 360 MG, SINGLE
     Route: 048
     Dates: start: 20250128, end: 20250128
  2. ORGOVYX [Suspect]
     Active Substance: RELUGOLIX
     Dosage: 120 MG, QD
     Route: 048
     Dates: start: 20250129
  3. NUBEQA [Suspect]
     Active Substance: DAROLUTAMIDE
     Route: 065
  4. METOPROLOL TARTRATE [Concomitant]
     Active Substance: METOPROLOL TARTRATE
     Route: 065
  5. ASPIRIN [Concomitant]
     Active Substance: ASPIRIN
     Route: 065
  6. ROSUVASTATIN CALCIUM [Concomitant]
     Active Substance: ROSUVASTATIN CALCIUM
     Route: 065
  7. MELOXICAM [Concomitant]
     Active Substance: MELOXICAM
     Route: 065
  8. COENZYME Q10 [Concomitant]
     Active Substance: DIETARY SUPPLEMENT\UBIDECARENONE
     Route: 048
  9. ZYRTEC [Concomitant]
     Active Substance: CETIRIZINE HYDROCHLORIDE
     Route: 065

REACTIONS (4)
  - Arthralgia [Unknown]
  - Fatigue [Unknown]
  - Hot flush [Unknown]
  - Headache [Unknown]
